FAERS Safety Report 19210392 (Version 3)
Quarter: 2021Q3

REPORT INFORMATION
  Report Type: Spontaneous
  Country: VE (occurrence: VE)
  Receive Date: 20210504
  Receipt Date: 20210813
  Transmission Date: 20211014
  Serious: Yes (Other)
  Sender: FDA-Public Use
  Company Number: NVSC2021VE095406

PATIENT
  Age: 51 Year
  Sex: Female

DRUGS (1)
  1. GLIVEC [Suspect]
     Active Substance: IMATINIB MESYLATE
     Indication: CHRONIC MYELOID LEUKAEMIA
     Dosage: 400 MG (4 X 100 MG TABLETS)
     Route: 065

REACTIONS (6)
  - Platelet count abnormal [Unknown]
  - Mouth ulceration [Unknown]
  - Acute myeloid leukaemia [Unknown]
  - Blast crisis in myelogenous leukaemia [Unknown]
  - White blood cell count increased [Unknown]
  - Haemoglobin abnormal [Unknown]

NARRATIVE: CASE EVENT DATE: 20210423
